FAERS Safety Report 8446542-3 (Version None)
Quarter: 2012Q2

REPORT INFORMATION
  Report Type: 
  Country: None (occurrence: None)
  Receive Date: 20120618
  Receipt Date: 20120611
  Transmission Date: 20120825
  Serious: Yes (Hospitalization)
  Sender: FDA-Public Use
  Company Number: GB-ELI_LILLY_AND_COMPANY-GB201206003501

PATIENT
  Age: 52 Year
  Sex: Male
  Weight: 126.5 kg

DRUGS (6)
  1. METFORMIN [Concomitant]
     Dosage: 1000 MG, BID
     Dates: start: 20120501
  2. EXENATIDE LONG ACTING RELEASE [Suspect]
     Indication: TYPE 2 DIABETES MELLITUS
     Dosage: 2 MG, WEEKLY (1/W)
     Route: 058
     Dates: start: 20120513
  3. ASPIRIN [Concomitant]
  4. METFORMIN [Concomitant]
     Dosage: 850 MG, BID
     Dates: end: 20120501
  5. PIOGLITAZONE [Concomitant]
  6. ATORVASTATIN CALCIUM [Concomitant]

REACTIONS (2)
  - PALPITATIONS [None]
  - ELECTROCARDIOGRAM T WAVE INVERSION [None]
